FAERS Safety Report 23346153 (Version 4)
Quarter: 2024Q1

REPORT INFORMATION
  Report Type: Spontaneous
  Country: US (occurrence: US)
  Receive Date: 20231228
  Receipt Date: 20240318
  Transmission Date: 20240409
  Serious: No
  Sender: FDA-Public Use
  Company Number: US-PFIZER INC-202300439776

PATIENT
  Age: 15 Year
  Sex: Male

DRUGS (1)
  1. GENOTROPIN [Suspect]
     Active Substance: SOMATROPIN
     Dosage: ALTERNATE 1.6MG + 1.8MG EVERY OTHER DAY, 7 DAYS PER WEEK

REACTIONS (2)
  - Drug dose omission by device [Unknown]
  - Device breakage [Unknown]
